FAERS Safety Report 10275127 (Version 1)
Quarter: 2014Q3

REPORT INFORMATION
  Report Type: Spontaneous
  Country: GB (occurrence: GB)
  Receive Date: 20140703
  Receipt Date: 20140703
  Transmission Date: 20150326
  Serious: Yes (Hospitalization, Disabling, Other)
  Sender: FDA-Public Use
  Company Number: GB-DRREDDYS-GER/UKI/14/0041456

PATIENT
  Age: 81 Year
  Sex: Female
  Weight: 50 kg

DRUGS (7)
  1. ASPIRIN. [Concomitant]
     Active Substance: ASPIRIN
     Indication: PRODUCT USED FOR UNKNOWN INDICATION
  2. ADCAL-D3 [Concomitant]
     Active Substance: CALCIUM CARBONATE\CHOLECALCIFEROL
     Indication: PRODUCT USED FOR UNKNOWN INDICATION
  3. LEVOFLOXACIN [Suspect]
     Active Substance: LEVOFLOXACIN
     Indication: PNEUMONIA
     Route: 048
     Dates: start: 20140522, end: 20140527
  4. SIMVASTATIN. [Suspect]
     Active Substance: SIMVASTATIN
     Indication: HYPERCHOLESTEROLAEMIA
     Route: 048
  5. BECLOFORTE [Concomitant]
     Indication: PRODUCT USED FOR UNKNOWN INDICATION
  6. SOTALOL. [Concomitant]
     Active Substance: SOTALOL
     Indication: PRODUCT USED FOR UNKNOWN INDICATION
  7. FUROSEMIDE. [Concomitant]
     Active Substance: FUROSEMIDE
     Indication: PRODUCT USED FOR UNKNOWN INDICATION

REACTIONS (4)
  - Immobile [Recovering/Resolving]
  - Eating disorder [Recovering/Resolving]
  - Somnolence [Recovering/Resolving]
  - Hepatic function abnormal [Recovering/Resolving]

NARRATIVE: CASE EVENT DATE: 20140527
